FAERS Safety Report 23775024 (Version 1)
Quarter: 2024Q2

REPORT INFORMATION
  Report Type: Spontaneous
  Country: US (occurrence: None)
  Receive Date: 20240423
  Receipt Date: 20240423
  Transmission Date: 20240715
  Serious: No
  Sender: FDA-Public Use
  Company Number: None

PATIENT
  Age: 73 Year
  Sex: Male
  Weight: 81.6 kg

DRUGS (1)
  1. SEMAGLUTIDE [Suspect]
     Active Substance: SEMAGLUTIDE
     Dates: start: 20230118, end: 20230616

REACTIONS (4)
  - Diarrhoea [None]
  - Vomiting [None]
  - Nausea [None]
  - Therapy change [None]

NARRATIVE: CASE EVENT DATE: 20230614
